FAERS Safety Report 9241662 (Version 1)
Quarter: 2013Q2

REPORT INFORMATION
  Report Type: Report from Study
  Country: BR (occurrence: BR)
  Receive Date: 20130419
  Receipt Date: 20130419
  Transmission Date: 20140414
  Serious: Yes (Other)
  Sender: FDA-Public Use
  Company Number: PHHY2013BR037754

PATIENT
  Age: 53 Year
  Sex: Female

DRUGS (3)
  1. TEGRETOL CR [Suspect]
     Indication: EPILEPSY
     Dosage: 1 DF, BID
     Route: 048
  2. FORASEQ [Suspect]
     Indication: ASTHMA
     Dosage: 1 DF, BID
  3. AIRES [Suspect]
     Indication: ASTHMA
     Dosage: 1 DF, BID
     Route: 048

REACTIONS (6)
  - Thoracic vertebral fracture [Recovered/Resolved with Sequelae]
  - Pain [Not Recovered/Not Resolved]
  - Gait disturbance [Unknown]
  - Cough [Not Recovered/Not Resolved]
  - Nasopharyngitis [Not Recovered/Not Resolved]
  - Feeling abnormal [Unknown]
